FAERS Safety Report 7211137-6 (Version None)
Quarter: 2011Q1

REPORT INFORMATION
  Report Type: 
  Country: None (occurrence: None)
  Receive Date: 20110105
  Receipt Date: 20101222
  Transmission Date: 20110831
  Serious: Yes (Hospitalization)
  Sender: FDA-Public Use
  Company Number: PHHY2010FR87114

PATIENT
  Age: 39 Year
  Sex: Female

DRUGS (2)
  1. ENOXAPARIN SODIUM [Suspect]
     Dosage: 40 MG, QD
     Route: 058
  2. FONDAPARINUX SODIUM [Concomitant]
     Dosage: 7.5 MG, QD
     Route: 058

REACTIONS (9)
  - PULMONARY EMBOLISM [None]
  - DYSPNOEA [None]
  - DRUG EXPOSURE DURING PREGNANCY [None]
  - INTRACARDIAC THROMBUS [None]
  - DILATATION VENTRICULAR [None]
  - TRICUSPID VALVE INCOMPETENCE [None]
  - ACUTE RESPIRATORY DISTRESS SYNDROME [None]
  - PULMONARY HYPERTENSION [None]
  - HEPARIN-INDUCED THROMBOCYTOPENIA [None]
